FAERS Safety Report 8957184 (Version 2)
Quarter: 2013Q1

REPORT INFORMATION
  Report Type: Spontaneous
  Country: DE (occurrence: DE)
  Receive Date: 20121211
  Receipt Date: 20130116
  Transmission Date: 20140127
  Serious: Yes (Other)
  Sender: FDA-Public Use
  Company Number: DE-ROCHE-1165952

PATIENT
  Sex: Male

DRUGS (4)
  1. TARCEVA [Suspect]
     Indication: PANCREATIC CARCINOMA
     Route: 065
     Dates: end: 201207
  2. TARCEVA [Suspect]
     Route: 065
  3. XELODA [Suspect]
     Indication: PANCREATIC CARCINOMA
     Route: 065
  4. GEMCITABINE [Suspect]
     Indication: PANCREATIC CARCINOMA
     Route: 065
     Dates: end: 201207

REACTIONS (2)
  - Haemolysis [Unknown]
  - Gastric stenosis [Not Recovered/Not Resolved]
